FAERS Safety Report 21130694 (Version 2)
Quarter: 2023Q2

REPORT INFORMATION
  Report Type: Report from Study
  Country: US (occurrence: US)
  Receive Date: 20220726
  Receipt Date: 20230602
  Transmission Date: 20230722
  Serious: No
  Sender: FDA-Public Use
  Company Number: US-TAKEDA-2022TUS049598

PATIENT
  Sex: Male

DRUGS (2)
  1. LISDEXAMFETAMINE DIMESYLATE [Suspect]
     Active Substance: LISDEXAMFETAMINE DIMESYLATE
     Indication: Attention deficit hyperactivity disorder
     Dosage: 60 MILLIGRAM, QD
     Route: 065
  2. LITHIUM [Concomitant]
     Active Substance: LITHIUM
     Indication: Head injury

REACTIONS (3)
  - Drug ineffective [Unknown]
  - Product physical issue [Unknown]
  - Product use issue [Unknown]
